FAERS Safety Report 9802424 (Version 1)
Quarter: 2014Q1

REPORT INFORMATION
  Report Type: Spontaneous
  Country: GB (occurrence: GB)
  Receive Date: 20140107
  Receipt Date: 20140107
  Transmission Date: 20141002
  Serious: Yes (Hospitalization)
  Sender: FDA-Public Use
  Company Number: GB-ACTAVIS-2013-24087

PATIENT
  Age: 75 Year
  Sex: Male
  Weight: 72 kg

DRUGS (2)
  1. PARACETAMOL (UNKNOWN) [Suspect]
     Indication: ARTHRALGIA
     Dosage: 1 G, QID, AS NEEDED
     Route: 048
     Dates: start: 20131127, end: 20131202
  2. ALCOHOL [Concomitant]
     Indication: PRODUCT USED FOR UNKNOWN INDICATION
     Dosage: UNK, RECENT INCREASE TO AROUND 3 BOTTLES OF WINE/WEEK.
     Route: 065

REACTIONS (5)
  - Melaena [Recovered/Resolved]
  - Erosive oesophagitis [Recovered/Resolved]
  - Gastritis erosive [Recovered/Resolved]
  - Erosive duodenitis [Recovered/Resolved]
  - Helicobacter infection [Recovered/Resolved]
